FAERS Safety Report 15822965 (Version 1)
Quarter: 2019Q1

REPORT INFORMATION
  Report Type: Spontaneous
  Country: RU (occurrence: RU)
  Receive Date: 20190114
  Receipt Date: 20190114
  Transmission Date: 20190417
  Serious: Yes (Other)
  Sender: FDA-Public Use
  Company Number: RU-IMPAX LABORATORIES, LLC-2018-IPXL-04455

PATIENT

DRUGS (5)
  1. LEVETIRACETAM. [Concomitant]
     Active Substance: LEVETIRACETAM
     Indication: EPILEPSY
     Dosage: 30-40 MG/KG/DAILY
     Route: 065
  2. VIGABATRINE [Suspect]
     Active Substance: VIGABATRIN
     Dosage: 2-4 DAYS-100 MG/KG/DAILY
     Route: 065
  3. DIVALPROEX SODIUM ER [Suspect]
     Active Substance: DIVALPROEX SODIUM
     Indication: EPILEPSY
     Dosage: 20 TO 30 MG/KG/ DAILY
     Route: 065
  4. VIGABATRINE [Suspect]
     Active Substance: VIGABATRIN
     Indication: EPILEPSY
     Dosage: 1ST DAY-50 MG/KG/DAILY
     Route: 065
  5. VIGABATRINE [Suspect]
     Active Substance: VIGABATRIN
     Dosage: 5 DAY AND AFTER-150 MG/KG/ DAILY
     Route: 065

REACTIONS (1)
  - Infantile spasms [Unknown]
